FAERS Safety Report 9175399 (Version 1)
Quarter: 2013Q1

REPORT INFORMATION
  Report Type: Spontaneous
  Country: GB (occurrence: GB)
  Receive Date: 20130320
  Receipt Date: 20130320
  Transmission Date: 20140127
  Serious: Yes (Other)
  Sender: FDA-Public Use
  Company Number: GB-TEVA-391609ISR

PATIENT
  Sex: Male

DRUGS (5)
  1. QUETIAPINE [Suspect]
     Indication: BIPOLAR II DISORDER
     Route: 065
  2. CITALOPRAM [Suspect]
     Indication: DEPRESSION
     Route: 065
  3. FLUOXETINE [Suspect]
     Indication: INTENTIONAL OVERDOSE
     Route: 065
  4. LITHIUM [Concomitant]
     Indication: BIPOLAR II DISORDER
     Route: 065
  5. VALPROATE [Concomitant]
     Indication: BIPOLAR II DISORDER
     Route: 065

REACTIONS (4)
  - Convulsion [Not Recovered/Not Resolved]
  - Bipolar II disorder [Not Recovered/Not Resolved]
  - Intentional overdose [Recovered/Resolved]
  - Suicide attempt [Recovered/Resolved]
